FAERS Safety Report 5861290-1 (Version None)
Quarter: 2008Q3

REPORT INFORMATION
  Report Type: 
  Country: None (occurrence: None)
  Receive Date: 20080827
  Receipt Date: 20080407
  Transmission Date: 20090109
  Serious: No
  Sender: FDA-Public Use
  Company Number: US-ABBOTT-08P-163-0445967-00

PATIENT

DRUGS (4)
  1. NIACIN [Suspect]
     Indication: DYSLIPIDAEMIA
  2. NIACIN [Suspect]
  3. LAROPIPRANT [Suspect]
  4. LAROPIPRANT [Suspect]

REACTIONS (1)
  - BLOOD CREATINE PHOSPHOKINASE INCREASED [None]
